FAERS Safety Report 4569756-1 (Version None)
Quarter: 2005Q1

REPORT INFORMATION
  Report Type: 
  Country: None (occurrence: None)
  Receive Date: 20050203
  Receipt Date: 20050202
  Transmission Date: 20050727
  Serious: Yes (Other)
  Sender: FDA-Public Use
  Company Number: CA-MERCK-0502CAN00018

PATIENT
  Age: 77 Year
  Sex: Female

DRUGS (5)
  1. FOSAMAX [Suspect]
     Route: 048
     Dates: start: 20050101
  2. PHENYTOIN [Concomitant]
     Indication: CONVULSION
     Route: 065
  3. PHENOBARBITAL [Concomitant]
     Route: 065
  4. FUROSEMIDE [Concomitant]
     Route: 065
  5. QUINAPRIL HYDROCHLORIDE [Concomitant]
     Route: 065

REACTIONS (2)
  - ANTICONVULSANT DRUG LEVEL BELOW THERAPEUTIC [None]
  - CONVULSION [None]
